FAERS Safety Report 4270789-3 (Version None)
Quarter: 2004Q1

REPORT INFORMATION
  Report Type: 
  Country: None (occurrence: None)
  Receive Date: 20040114
  Receipt Date: 20031231
  Transmission Date: 20041129
  Serious: Yes (Hospitalization, Other)
  Sender: FDA-Public Use
  Company Number: US-BRISTOL-MYERS SQUIBB COMPANY-12468195

PATIENT
  Age: 32 Year
  Sex: Male
  Weight: 78 kg

DRUGS (11)
  1. EFAVIRENZ [Suspect]
     Indication: HIV INFECTION
     Dosage: 05-DEC-2003 DISCONTINUED, RESTARTED 11-DEC-2003, DISCONTINUED 19-DEC-2003
     Route: 048
     Dates: start: 20030507, end: 20031219
  2. COMBIVIR [Suspect]
     Indication: HIV INFECTION
     Dosage: AT THE HOUR OF SLEEP
     Route: 048
     Dates: start: 20030505
  3. NEVIRAPINE [Suspect]
     Indication: HIV INFECTION
     Dosage: AT THE HOUR OF SLEEP
     Route: 048
     Dates: start: 20031221
  4. ASPIRIN [Concomitant]
     Route: 048
     Dates: start: 20031221
  5. BACTRIM DS [Concomitant]
     Dates: start: 20030423
  6. MULTI-VITAMIN [Concomitant]
     Route: 048
     Dates: start: 20000415
  7. MOTRIN [Concomitant]
     Dates: start: 20030510
  8. FLAXSEED OIL [Concomitant]
     Route: 048
     Dates: start: 20030515
  9. LAMISIL [Concomitant]
     Dates: start: 20030606
  10. ANDROGEL [Concomitant]
     Dates: start: 20030703
  11. ALDARA [Concomitant]
     Route: 061
     Dates: start: 20031221

REACTIONS (9)
  - CHEST PAIN [None]
  - DEPRESSION [None]
  - ELECTROCARDIOGRAM ABNORMAL [None]
  - INTENTIONAL OVERDOSE [None]
  - MYOCARDIAL INFARCTION [None]
  - MYOCARDIAL ISCHAEMIA [None]
  - PALPITATIONS [None]
  - SUICIDAL IDEATION [None]
  - TOBACCO ABUSE [None]
